FAERS Safety Report 13728156 (Version 1)
Quarter: 2017Q3

REPORT INFORMATION
  Report Type: Spontaneous
  Country: GB (occurrence: GB)
  Receive Date: 20170707
  Receipt Date: 20170707
  Transmission Date: 20171127
  Serious: Yes (Hospitalization, Disabling)
  Sender: FDA-Public Use
  Company Number: GB-TORRENT-00015395

PATIENT
  Age: 70 Year
  Sex: Female

DRUGS (1)
  1. RISPERIDONE. [Suspect]
     Active Substance: RISPERIDONE

REACTIONS (8)
  - Gait disturbance [Unknown]
  - Eating disorder [Unknown]
  - Insomnia [Unknown]
  - Blood sodium decreased [Unknown]
  - Red blood cell abnormality [Unknown]
  - Myocardial infarction [Unknown]
  - Chest pain [Unknown]
  - White blood cell disorder [Unknown]
